FAERS Safety Report 9937394 (Version 2)
Quarter: 2014Q1

REPORT INFORMATION
  Report Type: Spontaneous
  Country: IT (occurrence: IT)
  Receive Date: 20140303
  Receipt Date: 20140313
  Transmission Date: 20141002
  Serious: Yes (Other)
  Sender: FDA-Public Use
  Company Number: IT-JNJFOC-20140209613

PATIENT
  Age: 60 Year
  Sex: Male

DRUGS (2)
  1. IBUPROFEN [Suspect]
     Indication: TENDON PAIN
     Route: 048
     Dates: start: 20140110, end: 20140110
  2. LANSOPRAZOLE [Suspect]
     Indication: TENDON PAIN
     Route: 048
     Dates: start: 20140110, end: 20140110

REACTIONS (3)
  - Lip oedema [Recovering/Resolving]
  - Rash generalised [Recovering/Resolving]
  - Hypersensitivity [Recovering/Resolving]
